FAERS Safety Report 7621327-6 (Version None)
Quarter: 2011Q3

REPORT INFORMATION
  Report Type: 
  Country: None (occurrence: None)
  Receive Date: 20110719
  Receipt Date: 20110711
  Transmission Date: 20111222
  Serious: Yes (Hospitalization)
  Sender: FDA-Public Use
  Company Number: US-ELI_LILLY_AND_COMPANY-US201107002817

PATIENT
  Sex: Female

DRUGS (4)
  1. BYETTA [Suspect]
     Indication: TYPE 2 DIABETES MELLITUS
     Dosage: 5 UG, BID
     Route: 058
  2. METFORMIN HCL [Concomitant]
     Indication: TYPE 2 DIABETES MELLITUS
     Dosage: 1000 MG, UNK
     Route: 048
  3. BYETTA [Suspect]
     Dosage: 10 UG, BID
     Route: 058
  4. BYETTA [Suspect]
     Dosage: 10 UG, BID
     Route: 058
     Dates: start: 20110711

REACTIONS (6)
  - COLITIS ISCHAEMIC [None]
  - NAUSEA [None]
  - VOMITING [None]
  - FALL [None]
  - TREMOR [None]
  - BLOOD GLUCOSE DECREASED [None]
